FAERS Safety Report 8490749-6 (Version None)
Quarter: 2012Q3

REPORT INFORMATION
  Report Type: 
  Country: None (occurrence: None)
  Receive Date: 20120706
  Receipt Date: 20120626
  Transmission Date: 20120928
  Serious: Yes (Death)
  Sender: FDA-Public Use
  Company Number: NL-BIOGENIDEC-2012BI017141

PATIENT
  Sex: Female

DRUGS (2)
  1. CALCIUM CARBONATE [Concomitant]
  2. TYSABRI [Suspect]
     Indication: MULTIPLE SCLEROSIS
     Route: 042
     Dates: start: 20101020, end: 20110519

REACTIONS (2)
  - EUTHANASIA [None]
  - MULTIPLE SCLEROSIS [None]
